FAERS Safety Report 25852947 (Version 1)
Quarter: 2025Q3

REPORT INFORMATION
  Report Type: Spontaneous
  Country: CA (occurrence: CA)
  Receive Date: 20250926
  Receipt Date: 20250926
  Transmission Date: 20251020
  Serious: Yes (Other)
  Sender: ACERUS PHARMACEUTICALS CORPORATION
  Company Number: CA-ACERUSPHRM-2025-CA-000699

PATIENT
  Age: 66 Year
  Sex: Male

DRUGS (8)
  1. TESTOSTERONE [Suspect]
     Active Substance: TESTOSTERONE
     Indication: Andropause
     Route: 061
  2. ASPIRIN [Concomitant]
     Active Substance: ASPIRIN
     Indication: Product used for unknown indication
  3. CANDESARTAN [Concomitant]
     Active Substance: CANDESARTAN
     Indication: Product used for unknown indication
  4. LEVOTHYROXINE [Concomitant]
     Active Substance: LEVOTHYROXINE
     Indication: Product used for unknown indication
  5. LIPITOR [Concomitant]
     Active Substance: ATORVASTATIN CALCIUM
     Indication: Product used for unknown indication
  6. NORVASC [Concomitant]
     Active Substance: AMLODIPINE BESYLATE
     Indication: Product used for unknown indication
  7. PANTOPRAZOLE SODIUM [Concomitant]
     Active Substance: PANTOPRAZOLE SODIUM
     Indication: Product used for unknown indication
  8. RYALTRIS SUSPENSION [Concomitant]
     Indication: Product used for unknown indication

REACTIONS (2)
  - Application site exfoliation [Unknown]
  - Application site pain [Unknown]
